FAERS Safety Report 9470063 (Version 1)
Quarter: 2013Q3

REPORT INFORMATION
  Report Type: Spontaneous
  Country: ES (occurrence: ES)
  Receive Date: 20130822
  Receipt Date: 20130822
  Transmission Date: 20140515
  Serious: Yes (Hospitalization)
  Sender: FDA-Public Use
  Company Number: ES-MERCK-1308ESP008645

PATIENT
  Age: 84 Year
  Sex: Female
  Weight: 65 kg

DRUGS (12)
  1. SINEMET 25/250 MG COMPRIMIDOS [Suspect]
     Indication: PARKINSON^S DISEASE
     Dosage: UNK UNK, Q8H
     Route: 048
     Dates: start: 20130208, end: 20130809
  2. HYDROCHLOROTHIAZIDE [Concomitant]
     Dosage: 50 MG, Q24H
     Dates: start: 20130801
  3. FERO-GRADUMET [Concomitant]
     Dosage: 325 MG, Q24H
     Dates: start: 20130723
  4. BOREA [Concomitant]
     Dosage: 160 MG, UNK
     Dates: start: 20110713
  5. IBERCAL D [Concomitant]
     Dates: start: 20090630
  6. EFFERALGAN [Concomitant]
     Dosage: 1 G, Q12H
     Route: 048
     Dates: start: 20080711
  7. BONVIVA [Concomitant]
     Dosage: UNK
     Dates: start: 20090701
  8. SUMIAL [Concomitant]
     Dosage: UNK UNK, Q24H
     Dates: start: 20130216
  9. FOLIC ACID [Concomitant]
     Dosage: UNK
     Dates: start: 2011
  10. CROMATONBIC B12 [Concomitant]
     Dates: start: 2011
  11. DEXAMETHASONE [Concomitant]
     Dates: start: 20120724
  12. TOBRAMYCIN [Concomitant]
     Dosage: UNK
     Dates: start: 20120724

REACTIONS (4)
  - Vomiting [Recovered/Resolved]
  - Headache [Recovered/Resolved]
  - Dizziness [Recovered/Resolved]
  - Dehydration [Recovered/Resolved]
